FAERS Safety Report 4445574-X (Version None)
Quarter: 2004Q3

REPORT INFORMATION
  Report Type: 
  Country: None (occurrence: None)
  Receive Date: 20040902
  Receipt Date: 20040820
  Transmission Date: 20050211
  Serious: Yes (Other)
  Sender: FDA-Public Use
  Company Number: 2004050034

PATIENT
  Age: 58 Year
  Sex: Female

DRUGS (5)
  1. LIPITOR [Suspect]
     Indication: DYSLIPIDAEMIA
     Dosage: 10 MG (10 MG, 1 IN 1 D), ORAL
     Route: 048
     Dates: start: 20040501, end: 20040701
  2. INSULIN [Concomitant]
  3. METFORMIN HCL [Concomitant]
  4. GLIMEPIRIDE [Concomitant]
  5. OXCARBAZEPINE (OXCARBAZEPINE) [Concomitant]

REACTIONS (3)
  - ANGINA PECTORIS [None]
  - BLOOD CHOLESTEROL INCREASED [None]
  - CORONARY ARTERY OCCLUSION [None]
